FAERS Safety Report 12951777 (Version 2)
Quarter: 2020Q3

REPORT INFORMATION
  Report Type: Other
  Country: NL (occurrence: NL)
  Receive Date: 20161117
  Receipt Date: 20200929
  Transmission Date: 20201102
  Serious: Yes (Hospitalization, Other)
  Sender: FDA-Public Use
  Company Number: NL-ROCHE-1853546

PATIENT
  Age: 12 Year
  Sex: Male

DRUGS (7)
  1. PREDNISONE. [Suspect]
     Active Substance: PREDNISONE
     Indication: HASHIMOTO^S ENCEPHALOPATHY
     Route: 048
  2. RITUXIMAB. [Suspect]
     Active Substance: RITUXIMAB
     Indication: HASHIMOTO^S ENCEPHALOPATHY
     Route: 042
  3. PREDNISONE. [Suspect]
     Active Substance: PREDNISONE
     Route: 048
  4. METHYLPREDNISOLONE. [Suspect]
     Active Substance: METHYLPREDNISOLONE
     Indication: HASHIMOTO^S ENCEPHALOPATHY
     Dosage: THREE CONSECUTIVE DAYS
     Route: 065
  5. MYCOPHENOLATE MOFETIL. [Suspect]
     Active Substance: MYCOPHENOLATE MOFETIL
     Indication: HASHIMOTO^S ENCEPHALOPATHY
     Route: 065
  6. PREDNISONE. [Suspect]
     Active Substance: PREDNISONE
     Route: 048
  7. PREDNISONE. [Suspect]
     Active Substance: PREDNISONE
     Route: 048

REACTIONS (5)
  - Intentional product use issue [Unknown]
  - Hypogammaglobulinaemia [Unknown]
  - Abdominal abscess [Unknown]
  - Orchitis [Unknown]
  - Off label use [Unknown]
